FAERS Safety Report 9596151 (Version 6)
Quarter: 2014Q1

REPORT INFORMATION
  Report Type: Report from Study
  Country: IT (occurrence: IT)
  Receive Date: 20131004
  Receipt Date: 20140122
  Transmission Date: 20141002
  Serious: Yes (Life-Threatening, Hospitalization)
  Sender: FDA-Public Use
  Company Number: IT-TEVA-435916USA

PATIENT
  Age: 69 Year
  Sex: Male
  Weight: 73 kg

DRUGS (12)
  1. BENDAMUSTINE [Suspect]
     Indication: NODAL MARGINAL ZONE B-CELL LYMPHOMA
     Route: 042
     Dates: start: 20130605
  2. BENDAMUSTINE [Suspect]
     Route: 042
     Dates: start: 20130829, end: 20131231
  3. OFATUMUMAB [Suspect]
     Indication: NODAL MARGINAL ZONE B-CELL LYMPHOMA
     Route: 042
     Dates: start: 20130605
  4. OFATUMUMAB [Suspect]
     Route: 042
     Dates: start: 20130925, end: 20131231
  5. NITRODERM TTS [Concomitant]
     Route: 062
     Dates: start: 1983
  6. CARDIRENE [Concomitant]
     Route: 048
     Dates: start: 1983
  7. METOPROLOL [Concomitant]
     Indication: ISCHAEMIC CARDIOMYOPATHY
     Route: 048
     Dates: start: 1983
  8. ENALAPRIL [Concomitant]
     Indication: ISCHAEMIC CARDIOMYOPATHY
     Route: 048
     Dates: start: 1983
  9. GLIMEPIRIDE [Concomitant]
     Dosage: 6 MILLIGRAM DAILY;
     Route: 048
     Dates: start: 201201
  10. ATORVASTATIN [Concomitant]
     Route: 048
     Dates: start: 200501
  11. OMEPRAZOLE [Concomitant]
     Route: 048
     Dates: start: 201002
  12. METFORMINA [Concomitant]
     Dosage: 3000 MILLIGRAM DAILY;
     Dates: start: 201301

REACTIONS (1)
  - Myocardial infarction [Recovered/Resolved]
